FAERS Safety Report 4346106-7 (Version None)
Quarter: 2004Q2

REPORT INFORMATION
  Report Type: 
  Country: None (occurrence: None)
  Receive Date: 20040423
  Receipt Date: 20040423
  Transmission Date: 20050107
  Serious: Yes (Other)
  Sender: FDA-Public Use
  Company Number: None

PATIENT
  Age: 26 Year
  Sex: Female
  Weight: 61 kg

DRUGS (3)
  1. TOBRAMYCIN [Suspect]
     Indication: BRONCHIECTASIS
     Dosage: 100 MG Q12HOURS IV
     Route: 042
     Dates: start: 20040412, end: 20040423
  2. CEFTAZIDIME [Concomitant]
  3. NACL 100ML IVPB BRAUN [Suspect]

REACTIONS (1)
  - DEAFNESS [None]
